FAERS Safety Report 6191427-9 (Version None)
Quarter: 2009Q2

REPORT INFORMATION
  Report Type: 
  Country: None (occurrence: None)
  Receive Date: 20090515
  Receipt Date: 20080722
  Transmission Date: 20091009
  Serious: Yes (Other)
  Sender: FDA-Public Use
  Company Number: CN-BAYER-200920718GPV

PATIENT
  Age: 52 Year
  Sex: Male

DRUGS (1)
  1. SORAFENIB [Suspect]
     Indication: DRUG USE FOR UNKNOWN INDICATION
     Dosage: TOTAL DAILY DOSE: 600 MG
     Route: 048

REACTIONS (1)
  - HYDROTHORAX [None]
